FAERS Safety Report 24583587 (Version 1)
Quarter: 2024Q4

REPORT INFORMATION
  Report Type: Spontaneous
  Country: US (occurrence: US)
  Receive Date: 20241106
  Receipt Date: 20241106
  Transmission Date: 20250114
  Serious: Yes (Hospitalization, Other)
  Sender: DR REDDYS
  Company Number: US-DRL-USA-LIT/USA/24/0016391

PATIENT
  Age: 66 Year
  Sex: Female

DRUGS (4)
  1. CETIRIZINE [Suspect]
     Active Substance: CETIRIZINE HYDROCHLORIDE
     Indication: Angioedema
     Dosage: TWICE DAILY
  2. MONTELUKAST [Suspect]
     Active Substance: MONTELUKAST
     Indication: Angioedema
  3. PREDNISONE [Concomitant]
     Active Substance: PREDNISONE
     Indication: Angioedema
  4. OMALIZUMAB [Concomitant]
     Active Substance: OMALIZUMAB
     Indication: Angioedema

REACTIONS (1)
  - Drug ineffective for unapproved indication [Unknown]
